FAERS Safety Report 10369470 (Version 1)
Quarter: 2014Q1

REPORT INFORMATION
  Report Type: Spontaneous
  Country: US (occurrence: None)
  Receive Date: 20140306
  Receipt Date: 20140306
  Transmission Date: 20141002
  Serious: Yes (Hospitalization)
  Sender: FDA-Public Use
  Company Number: 163-21880-13091000

PATIENT
  Age: 63 Year
  Sex: Male
  Weight: 103.4 kg

DRUGS (12)
  1. REVLIMID (LENALIDOMIDE) (CAPSULES) [Suspect]
     Indication: PLASMA CELL MYELOMA
     Route: 048
     Dates: start: 201001
  2. METHIMAZOLE (THIAMAZOLE) [Concomitant]
  3. VITAMIN D3 (COLECALCIFEROL) [Concomitant]
  4. FLOMAX (TAMSULOSIN HYROCHLORIDE) [Concomitant]
  5. MAGNESIUM (MAGNESIUM) [Concomitant]
  6. ALPHA LIPOIC ACID (THIOCTIC ACID) [Concomitant]
  7. TUMS (CALCIUM CARBONATE) [Concomitant]
  8. ATIVAN (LORAZEPAM) [Concomitant]
  9. VICODIN (VICODIN) [Concomitant]
  10. COMPLEX (BECOSYM FORTE) [Concomitant]
  11. MULTI MAX (ASCORIC ACID W/CALCIUM/FOLIC ACID/MAGNESIUM/) [Concomitant]
  12. NEXIUM (ESOMEPRAZOLE) [Concomitant]

REACTIONS (1)
  - Thrombosis [None]
